FAERS Safety Report 6161268-7 (Version None)
Quarter: 2009Q2

REPORT INFORMATION
  Report Type: 
  Country: None (occurrence: None)
  Receive Date: 20090421
  Receipt Date: 20070606
  Transmission Date: 20091009
  Serious: Yes (Hospitalization)
  Sender: FDA-Public Use
  Company Number: US-ASTRAZENECA-2006UW22616

PATIENT
  Age: 21545 Day
  Sex: Female
  Weight: 83 kg

DRUGS (12)
  1. SEROQUEL [Suspect]
     Indication: SLEEP DISORDER
     Dosage: 20MG-300MG
     Route: 048
     Dates: start: 20011120
  2. RISPERDAL [Concomitant]
  3. TRAZODONE HCL [Concomitant]
  4. COGENTIN [Concomitant]
  5. ZYPREXA [Concomitant]
  6. AMBIEN [Concomitant]
  7. TOPROL-XL [Concomitant]
  8. CRESTOR [Concomitant]
  9. AMARYL [Concomitant]
  10. PROLIXIN DECANOATE [Concomitant]
  11. KLONOPIN [Concomitant]
  12. LEXAPRO [Concomitant]

REACTIONS (19)
  - ABDOMINAL PAIN [None]
  - BRONCHITIS [None]
  - COUGH [None]
  - DEHYDRATION [None]
  - DELUSION [None]
  - DIABETES MELLITUS [None]
  - DIZZINESS [None]
  - DYSPNOEA [None]
  - HEADACHE [None]
  - INSOMNIA [None]
  - NASAL CONGESTION [None]
  - NASOPHARYNGITIS [None]
  - NAUSEA [None]
  - RASH [None]
  - SCHIZOAFFECTIVE DISORDER [None]
  - SCHIZOPHRENIA, PARANOID TYPE [None]
  - SINUS TACHYCARDIA [None]
  - TINNITUS [None]
  - URINARY TRACT INFECTION [None]
